FAERS Safety Report 15869600 (Version 4)
Quarter: 2019Q2

REPORT INFORMATION
  Report Type: Report from Study
  Country: UM (occurrence: UM)
  Receive Date: 20190125
  Receipt Date: 20190613
  Transmission Date: 20190711
  Serious: Yes (Death)
  Sender: FDA-Public Use
  Company Number: UM-BIOMARINAP-UM-2019-121587

PATIENT
  Age: 13 Year
  Sex: Male
  Weight: 27.7 kg

DRUGS (23)
  1. BACLOFEN. [Concomitant]
     Active Substance: BACLOFEN
     Indication: MUSCLE SPASTICITY
     Dates: start: 2010
  2. VIMIZIM [Suspect]
     Active Substance: ELOSULFASE ALFA
     Indication: MUCOPOLYSACCHARIDOSIS IV
     Dosage: 2 MILLIGRAM/KILOGRAM, QW
     Route: 042
     Dates: start: 20190117, end: 20190117
  3. BACLOFEN. [Concomitant]
     Active Substance: BACLOFEN
     Indication: MUSCLE SPASTICITY
  4. BACLOFEN. [Concomitant]
     Active Substance: BACLOFEN
     Indication: MUSCLE SPASTICITY
  5. BACLOFEN. [Concomitant]
     Active Substance: BACLOFEN
     Indication: MUSCLE SPASTICITY
  6. DANTROLENE. [Concomitant]
     Active Substance: DANTROLENE SODIUM
     Indication: MUSCLE SPASTICITY
     Dates: start: 2010
  7. SUCRALFATE. [Concomitant]
     Active Substance: SUCRALFATE
     Indication: OESOPHAGITIS
  8. SUCRALFATE. [Concomitant]
     Active Substance: SUCRALFATE
     Indication: OESOPHAGITIS
  9. ALBUTEROL                          /00139501/ [Concomitant]
     Active Substance: ALBUTEROL
     Indication: BRONCHOSPASM
     Dates: start: 2009
  10. DANTROLENE. [Concomitant]
     Active Substance: DANTROLENE SODIUM
     Indication: MUSCLE SPASTICITY
  11. PULMICORT TURBUHALER [Concomitant]
     Active Substance: BUDESONIDE
     Indication: BRONCHOSPASM
     Dates: start: 2009
  12. DANTROLENE. [Concomitant]
     Active Substance: DANTROLENE SODIUM
     Indication: MUSCLE SPASTICITY
  13. DANTROLENE. [Concomitant]
     Active Substance: DANTROLENE SODIUM
     Indication: MUSCLE SPASTICITY
  14. DANTROLENE. [Concomitant]
     Active Substance: DANTROLENE SODIUM
     Indication: MUSCLE SPASTICITY
  15. SUCRALFATE. [Concomitant]
     Active Substance: SUCRALFATE
     Indication: OESOPHAGITIS
  16. BACLOFEN. [Concomitant]
     Active Substance: BACLOFEN
     Indication: MUSCLE SPASTICITY
  17. SUCRALFATE. [Concomitant]
     Active Substance: SUCRALFATE
     Indication: OESOPHAGITIS
     Dates: start: 2009
  18. BACLOFEN. [Concomitant]
     Active Substance: BACLOFEN
     Indication: MUSCLE SPASTICITY
  19. SUCRALFATE. [Concomitant]
     Active Substance: SUCRALFATE
     Indication: OESOPHAGITIS
  20. SUCRALFATE. [Concomitant]
     Active Substance: SUCRALFATE
     Indication: OESOPHAGITIS
  21. DANTROLENE. [Concomitant]
     Active Substance: DANTROLENE SODIUM
     Indication: MUSCLE SPASTICITY
  22. ZANTAC [Concomitant]
     Active Substance: RANITIDINE HYDROCHLORIDE
     Indication: GASTROOESOPHAGEAL REFLUX DISEASE
     Dates: start: 2009
  23. DIPHENHYDRAMINE. [Concomitant]
     Active Substance: DIPHENHYDRAMINE
     Indication: PREMEDICATION
     Dates: start: 20140206

REACTIONS (1)
  - Death [Fatal]

NARRATIVE: CASE EVENT DATE: 20190119
